FAERS Safety Report 15580846 (Version 1)
Quarter: 2018Q4

REPORT INFORMATION
  Report Type: Report from Study
  Country: HU (occurrence: HU)
  Receive Date: 20181102
  Receipt Date: 20181102
  Transmission Date: 20190205
  Serious: Yes (Other)
  Sender: FDA-Public Use
  Company Number: HU-BAUSCH-BL-2018-029980

PATIENT
  Age: 72 Year
  Sex: Female

DRUGS (3)
  1. EUCREAS [Interacting]
     Active Substance: METFORMIN HYDROCHLORIDE\VILDAGLIPTIN
     Dosage: 1 DF (METFORMIN 850 MG, VILDAGLIPTIN 50MG), QD
     Route: 065
  2. EUCREAS [Interacting]
     Active Substance: METFORMIN HYDROCHLORIDE\VILDAGLIPTIN
     Indication: DIABETES MELLITUS
     Dosage: 1 DF (METFORMIN 850 MG, VILDAGLIPTIN 50 MG)
     Route: 065
  3. METFORMIN [Suspect]
     Active Substance: METFORMIN HYDROCHLORIDE
     Indication: DIABETES MELLITUS
     Route: 065

REACTIONS (5)
  - Pruritus [Not Recovered/Not Resolved]
  - Blood pressure systolic decreased [Unknown]
  - Drug interaction [Unknown]
  - Blood glucose increased [Recovered/Resolved]
  - Blood pressure diastolic increased [Unknown]
